FAERS Safety Report 25281506 (Version 1)
Quarter: 2025Q2

REPORT INFORMATION
  Report Type: Spontaneous
  Country: DE (occurrence: DE)
  Receive Date: 20250508
  Receipt Date: 20250508
  Transmission Date: 20250716
  Serious: Yes (Life-Threatening, Hospitalization, Other)
  Sender: AUROBINDO
  Company Number: DE-002147023-NVSC2021DE004007

PATIENT
  Sex: Female
  Weight: 50 kg

DRUGS (9)
  1. FULVESTRANT [Suspect]
     Active Substance: FULVESTRANT
     Indication: Breast cancer metastatic
     Dosage: 250 MILLIGRAM, ONCE A DAY [250 MG, QD (WEEKLY)]
     Route: 030
     Dates: start: 20191213
  2. KISQALI [Suspect]
     Active Substance: RIBOCICLIB SUCCINATE
     Indication: Breast cancer metastatic
     Dosage: 400 MILLIGRAM, ONCE A DAY [400 MG, QD (SCHEMA 21 DAYS INTAKE, 7 DAYS PAUSE)]
     Route: 048
     Dates: start: 20191207, end: 20200301
  3. KISQALI [Suspect]
     Active Substance: RIBOCICLIB SUCCINATE
     Dosage: 600 MILLIGRAM, ONCE A DAY [600 MG, QD (SCHEMA 21 DAYS INTAKE, 7 DAYS PAUSE)]
     Route: 048
     Dates: start: 20200302, end: 20200506
  4. KISQALI [Suspect]
     Active Substance: RIBOCICLIB SUCCINATE
     Dosage: 400 MILLIGRAM, ONCE A DAY [400 MG, QD (SCHEMA 21 DAYS INTAKE, 7 DAYS PAUSE)]
     Route: 048
     Dates: start: 20200507, end: 20200515
  5. KISQALI [Suspect]
     Active Substance: RIBOCICLIB SUCCINATE
     Dosage: 600 MILLIGRAM, ONCE A DAY [600 MG, QD (SCHEMA 21 DAYS INTAKE, 7 DAYS PAUSE)]
     Route: 048
     Dates: start: 20200516, end: 20200807
  6. KISQALI [Suspect]
     Active Substance: RIBOCICLIB SUCCINATE
     Dosage: 400 MILLIGRAM, ONCE A DAY [400 MG, QD (SCHEMA 21 DAYS INTAKE, 7 DAYS PAUSE)]
     Route: 048
     Dates: start: 20200808, end: 20201002
  7. KISQALI [Suspect]
     Active Substance: RIBOCICLIB SUCCINATE
     Dosage: 600 MILLIGRAM, ONCE A DAY [600 MG, QD (SCHEMA 21 DAYS INTAKE, 7 DAYS PAUSE)]
     Route: 048
     Dates: start: 20201003, end: 20201119
  8. KISQALI [Suspect]
     Active Substance: RIBOCICLIB SUCCINATE
     Dosage: 400 MILLIGRAM, ONCE A DAY [400 MG, QD (SCHEMA 21 DAYS INTAKE, 7 DAYS PAUSE)]
     Route: 048
     Dates: start: 20201120
  9. MIRTAZAPINE [Concomitant]
     Active Substance: MIRTAZAPINE
     Indication: Product used for unknown indication
     Route: 065

REACTIONS (4)
  - Ascites [Recovered/Resolved]
  - Abdominal pain [Unknown]
  - Decreased appetite [Unknown]
  - Off label use [Unknown]

NARRATIVE: CASE EVENT DATE: 20210101
